FAERS Safety Report 6337993-1 (Version None)
Quarter: 2009Q3

REPORT INFORMATION
  Report Type: 
  Country: None (occurrence: None)
  Receive Date: 20090902
  Receipt Date: 20090831
  Transmission Date: 20100115
  Serious: Yes (Hospitalization)
  Sender: FDA-Public Use
  Company Number: US-BRISTOL-MYERS SQUIBB COMPANY-14761175

PATIENT
  Age: 76 Year
  Sex: Male
  Weight: 80 kg

DRUGS (13)
  1. TAXOL [Suspect]
     Indication: NON-SMALL CELL LUNG CANCER
     Route: 042
     Dates: start: 20090106, end: 20090502
  2. CARBOPLATIN [Suspect]
     Indication: NON-SMALL CELL LUNG CANCER
     Route: 042
     Dates: start: 20090106, end: 20090218
  3. CP-751,871 [Suspect]
     Indication: NON-SMALL CELL LUNG CANCER
     Route: 042
     Dates: start: 20090106
  4. GLIPIZIDE [Concomitant]
     Indication: DIABETES MELLITUS
     Dates: start: 20030301
  5. METFORMIN HCL [Concomitant]
     Indication: DIABETES MELLITUS
     Dates: start: 20031101
  6. ATENOLOL [Concomitant]
     Indication: HYPERTENSION
     Dates: start: 19960601
  7. CRESTOR [Concomitant]
     Indication: HYPERCHOLESTEROLAEMIA
     Dates: start: 20060801
  8. PRILOSEC [Concomitant]
     Indication: REFLUX GASTRITIS
     Dates: start: 20000301
  9. LISINOPRIL [Concomitant]
     Dates: start: 20090105
  10. MAG-OX [Concomitant]
     Dates: start: 20090319
  11. DEMECLOCYCLINE HCL [Concomitant]
     Dates: start: 20090407
  12. PROMETHAZINE HCL [Concomitant]
     Dates: start: 20090105
  13. LOPERAMIDE HCL [Concomitant]
     Dosage: 1 DOSAGEFORM = 1-2 MG
     Dates: start: 20081228

REACTIONS (1)
  - HIP FRACTURE [None]
